FAERS Safety Report 24814385 (Version 1)
Quarter: 2025Q1

REPORT INFORMATION
  Report Type: Spontaneous
  Country: US (occurrence: None)
  Receive Date: 20250106
  Receipt Date: 20250106
  Transmission Date: 20250408
  Serious: No
  Sender: FDA-CTU
  Company Number: None

PATIENT
  Age: 28 Year
  Sex: Female
  Weight: 63.5 kg

DRUGS (1)
  1. ENBREL [Suspect]
     Active Substance: ETANERCEPT
     Indication: Ankylosing spondylitis
     Dosage: FREQUENCY : WEEKLY;?
     Route: 058
     Dates: start: 202304

REACTIONS (2)
  - Illness [None]
  - Therapy interrupted [None]
